FAERS Safety Report 5646258-2 (Version None)
Quarter: 2008Q1

REPORT INFORMATION
  Report Type: 
  Country: None (occurrence: None)
  Receive Date: 20080301
  Receipt Date: 20080221
  Transmission Date: 20080703
  Serious: Yes (Hospitalization, Disabling)
  Sender: FDA-Public Use
  Company Number: GB-JNJFOC-20080205448

PATIENT
  Age: 65 Year
  Sex: Female

DRUGS (1)
  1. REMICADE [Suspect]
     Indication: RHEUMATOID ARTHRITIS
     Route: 042

REACTIONS (7)
  - DYSURIA [None]
  - HAEMATURIA [None]
  - LIVER FUNCTION TEST ABNORMAL [None]
  - MALAISE [None]
  - PAIN [None]
  - RASH [None]
  - URTICARIA [None]
